FAERS Safety Report 14571126 (Version 1)
Quarter: 2018Q1

REPORT INFORMATION
  Report Type: Spontaneous
  Country: US (occurrence: US)
  Receive Date: 20180223
  Receipt Date: 20180223
  Transmission Date: 20180509
  Serious: Yes (Hospitalization)
  Sender: FDA-Public Use
  Company Number: None

PATIENT
  Age: 62 Year
  Sex: Male
  Weight: 125 kg

DRUGS (2)
  1. PAROXETINE. [Suspect]
     Active Substance: PAROXETINE
     Indication: DEPRESSION
     Route: 048
     Dates: start: 20170714, end: 20170802
  2. ZOLPIDEM [Suspect]
     Active Substance: ZOLPIDEM\ZOLPIDEM TARTRATE
     Indication: INSOMNIA
     Route: 048
     Dates: start: 20170714, end: 20170802

REACTIONS (8)
  - Suicidal ideation [None]
  - Feeling jittery [None]
  - Economic problem [None]
  - Insomnia [None]
  - Anxiety [None]
  - Intentional self-injury [None]
  - Stress [None]
  - Depression [None]

NARRATIVE: CASE EVENT DATE: 20170804
